FAERS Safety Report 24030328 (Version 3)
Quarter: 2024Q3

REPORT INFORMATION
  Report Type: Spontaneous
  Country: CA (occurrence: CA)
  Receive Date: 20240628
  Receipt Date: 20240722
  Transmission Date: 20241017
  Serious: Yes (Life-Threatening, Hospitalization, Other)
  Sender: BAXTER
  Company Number: CA-BAXTER-2024BAX020387

PATIENT
  Age: 56 Year
  Sex: Male

DRUGS (337)
  1. ACETAMINOPHEN [Suspect]
     Active Substance: ACETAMINOPHEN
     Indication: Prinzmetal angina
     Dosage: 160.0 MILLIGRAM (DOSAGE FORM: NOT SPECIFIED)
     Route: 065
  2. ACETAMINOPHEN [Suspect]
     Active Substance: ACETAMINOPHEN
     Indication: Migraine
  3. ACETAMINOPHEN\CODEINE PHOSPHATE [Suspect]
     Active Substance: ACETAMINOPHEN\CODEINE PHOSPHATE
     Indication: Product used for unknown indication
     Dosage: UNK
     Route: 065
  4. ACETAMINOPHEN\CODEINE PHOSPHATE [Suspect]
     Active Substance: ACETAMINOPHEN\CODEINE PHOSPHATE
     Dosage: 1.0 DOSAGE FORMS 4 EVERY 1 DAYS
     Route: 065
  5. ACETAMINOPHEN\CODEINE PHOSPHATE [Suspect]
     Active Substance: ACETAMINOPHEN\CODEINE PHOSPHATE
     Indication: Product used for unknown indication
     Dosage: UNSPECIFIED DOSE 1 EVERY 1 DAYS
     Route: 048
  6. ACETAMINOPHEN\CODEINE PHOSPHATE [Suspect]
     Active Substance: ACETAMINOPHEN\CODEINE PHOSPHATE
     Indication: Prinzmetal angina
     Dosage: 160.0 MILLIGRAM AT AN UNSPECIFIED FREQUENCY
     Route: 065
  7. ACETAMINOPHEN\CODEINE PHOSPHATE [Suspect]
     Active Substance: ACETAMINOPHEN\CODEINE PHOSPHATE
     Indication: Migraine
     Dosage: UNSPECIFIED DOSE IN 1 EVERY 6 HOURS
     Route: 065
  8. ACETAMINOPHEN\CODEINE PHOSPHATE [Suspect]
     Active Substance: ACETAMINOPHEN\CODEINE PHOSPHATE
     Dosage: UNSPECIFIED DOSE IN 1 EVERY 24 HOURS
     Route: 048
  9. ACETAMINOPHEN\CODEINE PHOSPHATE [Suspect]
     Active Substance: ACETAMINOPHEN\CODEINE PHOSPHATE
     Dosage: UNSPECIFIED DOSE IN 1 EVERY 4 HOURS
     Route: 065
  10. ACETAMINOPHEN\CODEINE PHOSPHATE [Suspect]
     Active Substance: ACETAMINOPHEN\CODEINE PHOSPHATE
     Dosage: UNK
     Route: 065
  11. ACETAMINOPHEN\CODEINE PHOSPHATE [Suspect]
     Active Substance: ACETAMINOPHEN\CODEINE PHOSPHATE
     Dosage: 1 EVERY 6 HOURS
     Route: 065
  12. ACETAMINOPHEN\CODEINE PHOSPHATE [Suspect]
     Active Substance: ACETAMINOPHEN\CODEINE PHOSPHATE
     Dosage: UNK
     Route: 048
  13. ASPIRIN [Suspect]
     Active Substance: ASPIRIN
     Indication: Prinzmetal angina
     Dosage: UNSPECIFIED DOSE IN 1 EVERY 1 DAYS
     Route: 048
  14. ASPIRIN [Suspect]
     Active Substance: ASPIRIN
     Dosage: 81.0 MILLIGRAM IN 1 EVERY 1 DAYS
     Route: 065
  15. ASPIRIN [Suspect]
     Active Substance: ASPIRIN
     Dosage: UNK
     Route: 065
  16. ASPIRIN [Suspect]
     Active Substance: ASPIRIN
     Dosage: 1.0 DOSAGE FORM IN 1 EVERY 1 DAYS DOSAGE FORM:COATED TABLET
     Route: 065
  17. ASPIRIN [Suspect]
     Active Substance: ASPIRIN
     Dosage: 1 EVERY 1 DAYS
     Route: 065
  18. ASPIRIN [Suspect]
     Active Substance: ASPIRIN
     Dosage: UNK
     Route: 065
  19. ASPIRIN [Suspect]
     Active Substance: ASPIRIN
     Dosage: 81.0 MILLIGRAM IN 1 EVERY 1 DAYS
     Route: 065
  20. ASPIRIN [Suspect]
     Active Substance: ASPIRIN
     Dosage: 1 EVERY 1 DAYS (DOSAGE FORM:COATED TABLETS0
     Route: 065
  21. ASPIRIN [Suspect]
     Active Substance: ASPIRIN
     Dosage: 81.0 MILLIGRAM
     Route: 047
  22. ASPIRIN [Suspect]
     Active Substance: ASPIRIN
     Dosage: 1 EVERY 1 DAYS
     Route: 048
  23. ASPIRIN [Suspect]
     Active Substance: ASPIRIN
     Dosage: 81.0 MILLIGRAM 1 EVERY 1 DAYS
     Route: 048
  24. ALPRAZOLAM [Suspect]
     Active Substance: ALPRAZOLAM
     Indication: Prinzmetal angina
     Dosage: UNK
     Route: 065
  25. ALPRAZOLAM [Suspect]
     Active Substance: ALPRAZOLAM
     Indication: Migraine
  26. AMLODIPINE [Suspect]
     Active Substance: AMLODIPINE BESYLATE
     Indication: Prinzmetal angina
     Dosage: 1.5 DOSAGE FORM IN 1 EVERY 24 HOURS
     Route: 065
  27. AMLODIPINE [Suspect]
     Active Substance: AMLODIPINE BESYLATE
     Indication: Migraine
     Dosage: UNSPECIFIED DOSE IN 1 EVERY 1 DAYS
     Route: 065
  28. ALPRAZOLAM [Suspect]
     Active Substance: ALPRAZOLAM
     Route: 065
  29. AMLODIPINE BESYLATE [Suspect]
     Active Substance: AMLODIPINE BESYLATE
     Indication: Prinzmetal angina
     Dosage: 2.0 DOSAGE FORM
     Route: 065
  30. AMLODIPINE BESYLATE [Suspect]
     Active Substance: AMLODIPINE BESYLATE
     Indication: Migraine
     Dosage: 1.0 DOSAGE FORM IN 1 EVERY 1 DAYS
     Route: 065
  31. AMLODIPINE BESYLATE [Suspect]
     Active Substance: AMLODIPINE BESYLATE
     Dosage: 1.5 DOSAGE FORM 1 EVERY 1 DAYS
     Route: 065
  32. AMLODIPINE BESYLATE [Suspect]
     Active Substance: AMLODIPINE BESYLATE
     Dosage: 1.0 DOSAGE FORM IN 1 EVERY 8 HOURS
     Route: 065
  33. TRAZODONE [Suspect]
     Active Substance: TRAZODONE HYDROCHLORIDE
     Indication: Prinzmetal angina
     Dosage: 1.0 DOSAGE IN 1 EVERY 1 DAYS
     Route: 048
  34. TRAZODONE [Suspect]
     Active Substance: TRAZODONE HYDROCHLORIDE
     Indication: Migraine
     Dosage: 1.0 DOSAGE
     Route: 065
  35. TRAZODONE [Suspect]
     Active Substance: TRAZODONE HYDROCHLORIDE
     Dosage: 1.0 DOSAGE IN 1 EVERY 1 DAYS
     Route: 065
  36. TRAZODONE [Suspect]
     Active Substance: TRAZODONE HYDROCHLORIDE
     Dosage: UNK
     Route: 065
  37. BISOPROLOL [Suspect]
     Active Substance: BISOPROLOL\BISOPROLOL FUMARATE
     Indication: Prinzmetal angina
     Dosage: 1.0 DOSAGE FORMS IN 1 EVERY 1 DAYS
     Route: 065
  38. BISOPROLOL [Suspect]
     Active Substance: BISOPROLOL\BISOPROLOL FUMARATE
     Indication: Migraine
     Dosage: 1.0 DOSAGE FORMS IN 1 EVERY 24 HOURS
     Route: 048
  39. BISOPROLOL [Suspect]
     Active Substance: BISOPROLOL\BISOPROLOL FUMARATE
     Dosage: 1.0 DOSAGE FORMS IN 1 EVERY 24 HOURS
     Route: 065
  40. BISOPROLOL [Suspect]
     Active Substance: BISOPROLOL\BISOPROLOL FUMARATE
     Dosage: UNK
     Route: 065
  41. BISOPROLOL [Suspect]
     Active Substance: BISOPROLOL\BISOPROLOL FUMARATE
     Dosage: 1.0 DOSAGE FORMS
     Route: 065
  42. BISOPROLOL [Suspect]
     Active Substance: BISOPROLOL\BISOPROLOL FUMARATE
     Dosage: 1.0 DOSAGE FORM 1 EVERY 1 DAYS
     Route: 048
  43. BISOPROLOL FUMARATE [Suspect]
     Active Substance: BISOPROLOL FUMARATE
     Indication: Product used for unknown indication
     Dosage: 1.0 DOSAGE FORMS IN 1 EVERY 24 HOURS
     Route: 065
  44. BRILINTA [Suspect]
     Active Substance: TICAGRELOR
     Indication: Prinzmetal angina
     Dosage: 1.0 DOSAGE FORMS
     Route: 065
  45. BRILINTA [Suspect]
     Active Substance: TICAGRELOR
     Indication: Migraine
     Dosage: 1.0 DOSAGE FORMS IN 1 EVERY 12 HOURS
     Route: 048
  46. BRILINTA [Suspect]
     Active Substance: TICAGRELOR
     Dosage: 2.0 DOSAGE FORM IN 1 EVERY 12 HOURS
     Route: 065
  47. CICLOPIROX [Suspect]
     Active Substance: CICLOPIROX
     Indication: Prinzmetal angina
     Dosage: 1 EVERY 1 DAYS
     Route: 065
  48. CICLOPIROX [Suspect]
     Active Substance: CICLOPIROX
     Indication: Migraine
  49. CLONAZEPAM [Suspect]
     Active Substance: CLONAZEPAM
     Indication: Prinzmetal angina
     Dosage: 1.0 DOSAGE FORMS IN 1 EVERY 8 HOURS
     Route: 048
  50. CLONAZEPAM [Suspect]
     Active Substance: CLONAZEPAM
     Indication: Migraine
     Dosage: 3.0 DOSAGE FORMS IN 1 EVERY 1 DAYS
     Route: 048
  51. CLONAZEPAM [Suspect]
     Active Substance: CLONAZEPAM
     Dosage: 3.0 DOSAGE FORMS IN 1 EVERY 8 HOURS
     Route: 048
  52. CLONAZEPAM [Suspect]
     Active Substance: CLONAZEPAM
     Dosage: 3.0 DOSAGE FORMS
     Route: 048
  53. CLONAZEPAM [Suspect]
     Active Substance: CLONAZEPAM
     Dosage: UNK
     Route: 065
  54. CLONAZEPAM [Suspect]
     Active Substance: CLONAZEPAM
     Dosage: 1 DOSAGE FORM IN 1 EVERY 8 HOURA
     Route: 048
  55. CODEINE [Suspect]
     Active Substance: CODEINE
     Indication: Product used for unknown indication
     Dosage: UNK
     Route: 065
  56. CODEINE [Suspect]
     Active Substance: CODEINE
     Indication: Prinzmetal angina
  57. CODEINE [Suspect]
     Active Substance: CODEINE
     Indication: Migraine
  58. CICLOPIROX OLAMINE [Suspect]
     Active Substance: CICLOPIROX OLAMINE
     Indication: Product used for unknown indication
     Route: 065
  59. DEXILANT [Suspect]
     Active Substance: DEXLANSOPRAZOLE
     Indication: Prinzmetal angina
     Dosage: 1.0 DOSAGE FORMS IN 1 EVERY 1 DAYS
     Route: 048
  60. DEXILANT [Suspect]
     Active Substance: DEXLANSOPRAZOLE
     Indication: Migraine
     Dosage: 1.0 DOSAGE FORM IN 1 EVERY 1 DAYS
     Route: 065
  61. DEXILANT [Suspect]
     Active Substance: DEXLANSOPRAZOLE
     Dosage: 1.0 DOSAGE FORMS IN 1 EVERY 1 DAYS (DOSAGE FORM: PROLONGED RELEASE CAPSULE)
     Route: 065
  62. DEXILANT [Suspect]
     Active Substance: DEXLANSOPRAZOLE
     Dosage: 1.0 DOSAGE FORMS IN 1 EVERY 24 HOURS (DOSAGE FORM: PROLONGED RELEASES CAPSULE)
     Route: 048
  63. DEXILANT [Suspect]
     Active Substance: DEXLANSOPRAZOLE
     Dosage: 1.0 DOSAGE FORM
     Route: 065
  64. DEXILANT [Suspect]
     Active Substance: DEXLANSOPRAZOLE
     Dosage: 1.0 DOSAGE FORMS IN 1 EVERY 1 DAYS (DOSAGE FORM: CAPSULE DELAYED RELEASE)
     Route: 065
  65. DEXLANSOPRAZOLE [Suspect]
     Active Substance: DEXLANSOPRAZOLE
     Indication: Product used for unknown indication
     Dosage: 1.0 DOSAGE FORMS IN 1 EVERY 1 DAYS, DELAYED RELEASE
     Route: 065
  66. DILTIAZEM [Suspect]
     Active Substance: DILTIAZEM
     Indication: Product used for unknown indication
     Dosage: 1.0 DOSAGE FORM
     Route: 065
  67. DILTIAZEM [Suspect]
     Active Substance: DILTIAZEM
     Indication: Prinzmetal angina
  68. DILTIAZEM [Suspect]
     Active Substance: DILTIAZEM
     Indication: Migraine
  69. DILTIAZEM HYDROCHLORIDE [Suspect]
     Active Substance: DILTIAZEM HYDROCHLORIDE
     Indication: Product used for unknown indication
     Dosage: 1.0 DOSAGE FORM IN 1 EVRY 1 DAYS
     Route: 065
  70. DILTIAZEM HYDROCHLORIDE [Suspect]
     Active Substance: DILTIAZEM HYDROCHLORIDE
     Indication: Prinzmetal angina
     Dosage: 1.0 DOSAGE FORM IN 1 EVERY 24 HOURS
     Route: 048
  71. DILTIAZEM HYDROCHLORIDE [Suspect]
     Active Substance: DILTIAZEM HYDROCHLORIDE
     Indication: Migraine
     Dosage: (DOSAGE FORM: CAPSULE HARD)
     Route: 048
  72. DILTIAZEM HYDROCHLORIDE [Suspect]
     Active Substance: DILTIAZEM HYDROCHLORIDE
     Dosage: 1.0 DOSAGE FORM IN 1 EVERY 1 DAYS
     Route: 065
  73. DILTIAZEM HYDROCHLORIDE [Suspect]
     Active Substance: DILTIAZEM HYDROCHLORIDE
     Dosage: 1.0 DOSAGE FORM IN 1 EVERY 24 HOURS
     Route: 048
  74. ESCITALOPRAM [Suspect]
     Active Substance: ESCITALOPRAM OXALATE
     Indication: Product used for unknown indication
     Dosage: 1.0 DOSAGE FORMS IN 1 EVERY 1 DAYS
     Route: 065
  75. ESCITALOPRAM [Suspect]
     Active Substance: ESCITALOPRAM OXALATE
     Indication: Prinzmetal angina
  76. ESCITALOPRAM OXALATE [Suspect]
     Active Substance: ESCITALOPRAM OXALATE
     Indication: Prinzmetal angina
     Dosage: 1.0 DOAGE FORMS
     Route: 065
  77. ESCITALOPRAM OXALATE [Suspect]
     Active Substance: ESCITALOPRAM OXALATE
     Indication: Migraine
     Dosage: 1.0 DOSAGE FORM IN 1 EVERY 1 DAYS
     Route: 065
  78. ESCITALOPRAM OXALATE [Suspect]
     Active Substance: ESCITALOPRAM OXALATE
     Dosage: UNK
     Route: 065
  79. ESCITALOPRAM OXALATE [Suspect]
     Active Substance: ESCITALOPRAM OXALATE
     Dosage: 1 EVERY 1 DAYS
     Route: 065
  80. NITROGLYCERIN [Suspect]
     Active Substance: NITROGLYCERIN
     Indication: Prinzmetal angina
     Dosage: 1.0 DOSAGE FORM
     Route: 048
  81. NITROGLYCERIN [Suspect]
     Active Substance: NITROGLYCERIN
     Indication: Migraine
     Dosage: 1.0 DOSAGE FORM IN 1 EVERY 6 HOURS
     Route: 048
  82. NITROGLYCERIN [Suspect]
     Active Substance: NITROGLYCERIN
     Dosage: 1.0 DOSAGE FORM IN 1 EVERY 8 HOURS
     Route: 065
  83. HYDROCORTISONE BUTYRATE [Suspect]
     Active Substance: HYDROCORTISONE BUTYRATE
     Indication: Prinzmetal angina
     Dosage: 1.0 DOSAGE FORMS IN 1 EVERY 1 DAYS
     Route: 061
  84. HYDROCORTISONE BUTYRATE [Suspect]
     Active Substance: HYDROCORTISONE BUTYRATE
     Indication: Migraine
     Dosage: 1.0 DOSAGE FORMS
     Route: 061
  85. HYDROCORTISONE BUTYRATE [Suspect]
     Active Substance: HYDROCORTISONE BUTYRATE
     Dosage: 1 EVERY 1 DAYS
     Route: 061
  86. HYDROCORTISONE BUTYRATE [Suspect]
     Active Substance: HYDROCORTISONE BUTYRATE
     Dosage: 1.0 DOSAGE FORMS IN 1 EVERY 1 DAYS
     Route: 065
  87. HYDROCORTISONE BUTYRATE [Suspect]
     Active Substance: HYDROCORTISONE BUTYRATE
     Dosage: UNK
     Route: 065
  88. HYDROCORTISONE BUTYRATE [Suspect]
     Active Substance: HYDROCORTISONE BUTYRATE
     Dosage: UNK
     Route: 061
  89. HYDROCORTISONE [Suspect]
     Active Substance: HYDROCORTISONE\HYDROCORTISONE ACETATE
     Indication: Product used for unknown indication
     Dosage: (DOSAGE FORM: NOT SPECIFIED) AT AN UNSPECIFIED DOSE AND FREQUENCY
     Route: 065
  90. HYDROMORPHONE [Suspect]
     Active Substance: HYDROMORPHONE
     Indication: Product used for unknown indication
     Dosage: DOSAGE FORM: NOT SPECIFIED
     Route: 065
  91. HYDROMORPHONE [Suspect]
     Active Substance: HYDROMORPHONE
     Indication: Prinzmetal angina
  92. HYDROMORPHONE [Suspect]
     Active Substance: HYDROMORPHONE
     Indication: Migraine
  93. LEVOTHYROXINE SODIUM [Suspect]
     Active Substance: LEVOTHYROXINE SODIUM
     Indication: Prinzmetal angina
     Dosage: 1.0 DOSAGE FORMS IN 1 EVERY 24 HOURS
     Route: 065
  94. LEVOTHYROXINE SODIUM [Suspect]
     Active Substance: LEVOTHYROXINE SODIUM
     Indication: Migraine
     Dosage: 1.0 DOSAGE FORSMS IN 1 EERY 1 DAYS
     Route: 065
  95. METOCLOPRAMIDE HYDROCHLORIDE [Suspect]
     Active Substance: METOCLOPRAMIDE HYDROCHLORIDE
     Indication: Migraine
     Dosage: 3.0 DOSAGE FORM IN 1 EVERY 8 HOURS
     Route: 048
  96. METOCLOPRAMIDE HYDROCHLORIDE [Suspect]
     Active Substance: METOCLOPRAMIDE HYDROCHLORIDE
     Indication: Prinzmetal angina
     Dosage: 3.0 DOSAGE FORM
     Route: 065
  97. METOCLOPRAMIDE HYDROCHLORIDE [Suspect]
     Active Substance: METOCLOPRAMIDE HYDROCHLORIDE
     Dosage: 3.0 DOSAGE FORM
     Route: 048
  98. METOCLOPRAMIDE HYDROCHLORIDE [Suspect]
     Active Substance: METOCLOPRAMIDE HYDROCHLORIDE
     Dosage: 1.0 DOSAGE FORM IN 1 EVERY 8 HOURS
     Route: 065
  99. METOCLOPRAMIDE HYDROCHLORIDE [Suspect]
     Active Substance: METOCLOPRAMIDE HYDROCHLORIDE
     Dosage: 1.0 DOSAGE FORM IN 1 EVERY 1 DAYS
     Route: 065
  100. METOCLOPRAMIDE HYDROCHLORIDE [Suspect]
     Active Substance: METOCLOPRAMIDE HYDROCHLORIDE
     Dosage: 1 EVERY 8 HOUR
     Route: 065
  101. METOCLOPRAMIDE HYDROCHLORIDE [Suspect]
     Active Substance: METOCLOPRAMIDE HYDROCHLORIDE
     Dosage: 3.0 DOSAGE FORM IN 1 EVERY 24 HOURS
     Route: 065
  102. METOCLOPRAMIDE HYDROCHLORIDE [Suspect]
     Active Substance: METOCLOPRAMIDE HYDROCHLORIDE
     Dosage: 1 EVERY 1 DAYS
     Route: 065
  103. METOCLOPRAMIDE HYDROCHLORIDE [Suspect]
     Active Substance: METOCLOPRAMIDE HYDROCHLORIDE
     Dosage: UNK
     Route: 048
  104. METOCLOPRAMIDE [Suspect]
     Active Substance: METOCLOPRAMIDE
     Route: 065
  105. METOCLOPRAMIDE [Suspect]
     Active Substance: METOCLOPRAMIDE
     Indication: Migraine
     Dosage: 1.0 DOSAGE FORMS IN 1 EVERY 8 HOURS
     Route: 048
  106. METOCLOPRAMIDE [Suspect]
     Active Substance: METOCLOPRAMIDE
     Indication: Prinzmetal angina
     Dosage: 1.0 DOSAGE FORMS IN 1 EVERY 8 HOURS
     Route: 065
  107. METOCLOPRAMIDE [Suspect]
     Active Substance: METOCLOPRAMIDE
     Dosage: 1.0 DOSAGE FORMS
     Route: 065
  108. MOMETASONE FUROATE [Suspect]
     Active Substance: MOMETASONE FUROATE
     Indication: Prinzmetal angina
     Dosage: 1.0 DOSAGE FORMS IN 1 EVERY 1 DAYS
  109. MOMETASONE FUROATE [Suspect]
     Active Substance: MOMETASONE FUROATE
     Indication: Migraine
     Dosage: UNK
  110. MOMETASONE FUROATE [Suspect]
     Active Substance: MOMETASONE FUROATE
     Dosage: UNK
     Route: 065
  111. NASONEX [Suspect]
     Active Substance: MOMETASONE FUROATE
     Indication: Prinzmetal angina
     Dosage: 1.0 DOSAGE FORMS IN 1 EVERY 24 HOURS
     Route: 065
  112. NASONEX [Suspect]
     Active Substance: MOMETASONE FUROATE
     Indication: Migraine
     Dosage: 1.0 DOSAGE FORMS IN 1 EVERY 1 DAYS
  113. NASONEX [Suspect]
     Active Substance: MOMETASONE FUROATE
     Dosage: 1.0 DOSAGE FORMS
     Route: 065
  114. NASONEX [Suspect]
     Active Substance: MOMETASONE FUROATE
     Dosage: 1.0 DOSAGE FORMS IN 1 EVERY 1 DAYS, ROUTE: INTRA NASAL
  115. SYNTHROID [Suspect]
     Active Substance: LEVOTHYROXINE SODIUM
     Indication: Product used for unknown indication
     Route: 065
  116. SYNTHROID [Suspect]
     Active Substance: LEVOTHYROXINE SODIUM
     Dosage: DOSAGE FORM: NOT SPECIFIED) AT AN UNSPECIFIED DOSE AND FREQUENCY
     Route: 065
  117. NITRO-DUR [Suspect]
     Active Substance: NITROGLYCERIN
     Indication: Product used for unknown indication
     Dosage: 1.0 DOSAGE FORMS IN 1 EVERY 8 HOURS
     Route: 048
  118. NITRO-DUR [Suspect]
     Active Substance: NITROGLYCERIN
     Dosage: 1.0 DOSAGE FORMS IN 1 EVERY 6 HOURS
     Route: 048
  119. NITRO-DUR [Suspect]
     Active Substance: NITROGLYCERIN
     Dosage: 1.0 DOSAGE FORMS IN 1 EVERY 4 DAYS
     Route: 048
  120. NITRO-DUR [Suspect]
     Active Substance: NITROGLYCERIN
     Dosage: 1.0 DOSAGE FORMS IN 1 EVERY 1 DAYS
     Route: 065
  121. NITRO-DUR [Suspect]
     Active Substance: NITROGLYCERIN
     Dosage: 1.0 DOSAGE FORMS IN 1 EVERY DAYS
     Route: 048
  122. NITRO-DUR [Suspect]
     Active Substance: NITROGLYCERIN
     Dosage: 1.0 DOSAGE FORMS IN 1 EVERY 24 HOURS
     Route: 065
  123. NITRO-DUR [Suspect]
     Active Substance: NITROGLYCERIN
     Dosage: DOSAGE FORM: PATCH EXTENDED RELEASE, 1 DOSAGE FORMS 1 EVERY 24 HRS
     Route: 065
  124. NITRO-DUR [Suspect]
     Active Substance: NITROGLYCERIN
     Dosage: UNK
     Route: 065
  125. NITROGLYCERIN [Suspect]
     Active Substance: NITROGLYCERIN
     Indication: Product used for unknown indication
     Dosage: 1.0 DOSAGE FORMS IN 1 EVERY 1 DAYS (DOSAGE FORMS: SUBLINGUAL SPRAY)
     Route: 048
  126. NITROGLYCERIN [Suspect]
     Active Substance: NITROGLYCERIN
     Indication: Prinzmetal angina
     Dosage: 1.0 DOSAGE FORMS IN 1 EVERY 1 DAYS (DOSAGE FORM: TRANSDERMAL PATCH)
     Route: 065
  127. NITROGLYCERIN [Suspect]
     Active Substance: NITROGLYCERIN
     Indication: Migraine
     Dosage: 1.0 DOSAGE FORMS IN 1 EVERY 1 DAYS (DOSAGE FORM: OROMUCOSAL SPRAY)
     Route: 049
  128. NITROGLYCERIN [Suspect]
     Active Substance: NITROGLYCERIN
     Dosage: 1.0 DOSAGE FORMS IN 1 EVERY 1 DAYS (DOSAGE FROM: NOT SPECIFIED)
     Route: 065
  129. NITROGLYCERIN [Suspect]
     Active Substance: NITROGLYCERIN
     Dosage: 1.0 DOSAGE FORMS IN 1 EVERY 8 HOURS
     Route: 048
  130. NITROGLYCERIN [Suspect]
     Active Substance: NITROGLYCERIN
     Dosage: 1.0 DOSAGE FORMS (DOSAGE FORMS: OROMUCOSAL SPRAY)
     Route: 048
  131. NITROGLYCERIN [Suspect]
     Active Substance: NITROGLYCERIN
     Dosage: DOSAGE FROM: OROMUCOSAL SPRAY
     Route: 048
  132. NITROGLYCERIN [Suspect]
     Active Substance: NITROGLYCERIN
     Dosage: DOSAGE FORM: INHALATION GAS
     Route: 048
  133. NITROGLYCERIN [Suspect]
     Active Substance: NITROGLYCERIN
     Dosage: 1.0 DOSAGE FORMS IN 1 EVERY 6 HOURS
     Route: 048
  134. RAMIPRIL [Suspect]
     Active Substance: RAMIPRIL
     Indication: Product used for unknown indication
     Dosage: 1.0 DOSAGE FROMS IN 1 EVERY 6 HOURS (DOSAGE FORM: NOT SPECIFIED)
     Route: 065
  135. RAMIPRIL [Suspect]
     Active Substance: RAMIPRIL
     Indication: Prinzmetal angina
     Dosage: 4.0 DOSAGE FORMS IN 1 EVERY 1 DAYS
     Route: 048
  136. RAMIPRIL [Suspect]
     Active Substance: RAMIPRIL
     Indication: Migraine
     Dosage: 1.0 DOSAGE FORMS
     Route: 065
  137. RAMIPRIL [Suspect]
     Active Substance: RAMIPRIL
     Dosage: 0.25 DOSAGE FORMS
     Route: 065
  138. RAMIPRIL [Suspect]
     Active Substance: RAMIPRIL
     Dosage: 1.0 DOSAGE FORMS IN 1 EVERY 4 DAYS
     Route: 065
  139. RAMIPRIL [Suspect]
     Active Substance: RAMIPRIL
     Dosage: 1.0 DOSAGE FORMS IN 1 EVERY 24 HOURS
     Route: 048
  140. RAMIPRIL [Suspect]
     Active Substance: RAMIPRIL
     Dosage: 1 EVERY 6 HOURS
     Route: 065
  141. RAMIPRIL [Suspect]
     Active Substance: RAMIPRIL
     Dosage: 1 EVERY 4 HOURS
     Route: 065
  142. RAMIPRIL [Suspect]
     Active Substance: RAMIPRIL
     Dosage: 4.0 DOSAGE FORMS
     Route: 048
  143. RIVOTRIL [Suspect]
     Active Substance: CLONAZEPAM
     Indication: Product used for unknown indication
     Dosage: 1.0 DOSAGE FROM IN 1 EVERY 8 HOURS
     Route: 048
  144. RIVOTRIL [Suspect]
     Active Substance: CLONAZEPAM
     Dosage: 3.0 DOSAGE FORMS IN 1 EVERY 1 DAYS
     Route: 048
  145. RIVOTRIL [Suspect]
     Active Substance: CLONAZEPAM
     Dosage: 1 EVERY 24 HOURS
     Route: 048
  146. RIVOTRIL [Suspect]
     Active Substance: CLONAZEPAM
     Dosage: 1 EVERY 8 HOURS
     Route: 048
  147. RIVOTRIL [Suspect]
     Active Substance: CLONAZEPAM
     Dosage: 0.5 MILLIGRAM
     Route: 065
  148. RIVOTRIL [Suspect]
     Active Substance: CLONAZEPAM
     Dosage: 1.0 DOSAGE FRMS IN 1 EVERY 8 HOURS
     Route: 065
  149. RIVOTRIL [Suspect]
     Active Substance: CLONAZEPAM
     Dosage: 3.0 DOSAGE FORMS IN 1 EVERY 8 HOURS
     Route: 065
  150. RIVOTRIL [Suspect]
     Active Substance: CLONAZEPAM
     Dosage: UNK
     Route: 065
  151. ROSUVASTATIN [Suspect]
     Active Substance: ROSUVASTATIN\ROSUVASTATIN CALCIUM
     Indication: Product used for unknown indication
     Dosage: 1.0 DOSAGE FORMS IN 1 EVERY 8 HOURS
     Route: 065
  152. ROSUVASTATIN [Suspect]
     Active Substance: ROSUVASTATIN\ROSUVASTATIN CALCIUM
     Dosage: 1.0 DOSAGE FORM
     Route: 065
  153. ROSUVASTATIN [Suspect]
     Active Substance: ROSUVASTATIN\ROSUVASTATIN CALCIUM
     Dosage: 2.0 DOSAGE FORM IN 1 EVERY 24 HOURS
     Route: 065
  154. ROSUVASTATIN [Suspect]
     Active Substance: ROSUVASTATIN\ROSUVASTATIN CALCIUM
     Dosage: 3.0 DOSAGE FORM IN 1 EVERY 24 HOURS
     Route: 065
  155. ROSUVASTATIN [Suspect]
     Active Substance: ROSUVASTATIN\ROSUVASTATIN CALCIUM
     Dosage: 1.0 DOSAGE FORMS IN 1 EVERY 24 HOURS
     Route: 065
  156. ROSUVASTATIN [Suspect]
     Active Substance: ROSUVASTATIN\ROSUVASTATIN CALCIUM
     Dosage: UNK
     Route: 061
  157. ROSUVASTATIN [Suspect]
     Active Substance: ROSUVASTATIN\ROSUVASTATIN CALCIUM
     Dosage: UNK
     Route: 048
  158. ROSUVASTATIN [Suspect]
     Active Substance: ROSUVASTATIN\ROSUVASTATIN CALCIUM
     Dosage: 0.5 ML
     Route: 065
  159. ROSUVASTATIN [Suspect]
     Active Substance: ROSUVASTATIN\ROSUVASTATIN CALCIUM
     Dosage: 1.0 DOSAGE FORMS IN 1 EVERY 24 HOURS ()DOSAGE FORM: NOT SPECIFIED
     Route: 048
  160. ROSUVASTATIN [Suspect]
     Active Substance: ROSUVASTATIN\ROSUVASTATIN CALCIUM
     Dosage: 1.5 DOSAGE FORM IN 1 EVERY 24 HOURS
     Route: 065
  161. ROSUVASTATIN [Suspect]
     Active Substance: ROSUVASTATIN\ROSUVASTATIN CALCIUM
     Dosage: 0.5 ML IN 1 EVERY 1 DAYS
     Route: 065
  162. ROSUVASTATIN [Suspect]
     Active Substance: ROSUVASTATIN\ROSUVASTATIN CALCIUM
     Dosage: 2.0 DOSAGE FORMS IN 1 EVERY 12 HOURS
     Route: 065
  163. ROSUVASTATIN [Suspect]
     Active Substance: ROSUVASTATIN\ROSUVASTATIN CALCIUM
     Dosage: UNK
     Route: 061
  164. ROSUVASTATIN CALCIUM [Suspect]
     Active Substance: ROSUVASTATIN CALCIUM
     Indication: Product used for unknown indication
     Dosage: 1.0 DOSAGE FORM IN 1 EVERY 1 DAYS
     Route: 048
  165. ROSUVASTATIN CALCIUM [Suspect]
     Active Substance: ROSUVASTATIN CALCIUM
     Indication: Prinzmetal angina
     Dosage: 1.0 DOSAGE FORMS IN 1 EVERY 1 DAYS
     Route: 065
  166. ROSUVASTATIN CALCIUM [Suspect]
     Active Substance: ROSUVASTATIN CALCIUM
     Indication: Migraine
     Dosage: 1.0 DOSAGE FORMS IN 1 EVERY 1 DAYS
     Route: 048
  167. ROSUVASTATIN CALCIUM [Suspect]
     Active Substance: ROSUVASTATIN CALCIUM
     Dosage: 1.0 DOSAGE FORMS IN EVERY 1 DAYS
     Route: 065
  168. TAMSULOSIN [Suspect]
     Active Substance: TAMSULOSIN
     Indication: Product used for unknown indication
     Dosage: 1.0 DOSAGE FORM IN 1 EVERY 1 DAYS
     Route: 048
  169. TAMSULOSIN [Suspect]
     Active Substance: TAMSULOSIN
     Dosage: 1.0 DOSAGE FORMS IN 1 EVERY 1 DAYS (DOSAGE FORM: TABLET EXTENDED-RELEASE)
     Route: 065
  170. TAMSULOSIN HYDROCHLORIDE [Suspect]
     Active Substance: TAMSULOSIN HYDROCHLORIDE
     Indication: Prinzmetal angina
     Dosage: 1.0 DOSAGE FORM
     Route: 048
  171. TAMSULOSIN HYDROCHLORIDE [Suspect]
     Active Substance: TAMSULOSIN HYDROCHLORIDE
     Indication: Migraine
     Dosage: 1.0 DOSAGE FORMS IN 1 EVERY 1 DAYS
     Route: 048
  172. TAMSULOSIN HYDROCHLORIDE [Suspect]
     Active Substance: TAMSULOSIN HYDROCHLORIDE
     Dosage: 1.0 DOSAGE FORM IN 1 EVERY 1 DAYS (SUSTAINED RELEASE CAPSULE)
     Route: 065
  173. TAMSULOSIN HYDROCHLORIDE [Suspect]
     Active Substance: TAMSULOSIN HYDROCHLORIDE
     Dosage: 1.0 DOSAGE FORM IN 1 EVERY 1 DAYS (SUSTAINED RELEASE CAPSULE)
     Route: 048
  174. TAMSULOSIN HYDROCHLORIDE [Suspect]
     Active Substance: TAMSULOSIN HYDROCHLORIDE
     Dosage: 1 EVERY 1 DAYS
     Route: 048
  175. TESTOSTERONE ENANTHATE [Suspect]
     Active Substance: TESTOSTERONE ENANTHATE
     Indication: Product used for unknown indication
     Dosage: 0.5 ML IN 1 EVERY 1 DAYS
     Route: 065
  176. TESTOSTERONE ENANTHATE [Suspect]
     Active Substance: TESTOSTERONE ENANTHATE
     Indication: Prinzmetal angina
     Dosage: 0.5 ML
     Route: 030
  177. TESTOSTERONE ENANTHATE [Suspect]
     Active Substance: TESTOSTERONE ENANTHATE
     Indication: Migraine
     Dosage: 5.0 ML
     Route: 065
  178. TESTOSTERONE ENANTHATE [Suspect]
     Active Substance: TESTOSTERONE ENANTHATE
     Dosage: DOSAGE FORM: LIQUID INTRAMUSCULAR
     Route: 030
  179. TICAGRELOR [Suspect]
     Active Substance: TICAGRELOR
     Indication: Product used for unknown indication
     Dosage: 1.0 DOSAGE FORM IN 1 EVERY 12 HOURS
     Route: 065
  180. TICAGRELOR [Suspect]
     Active Substance: TICAGRELOR
     Dosage: UNK
     Route: 065
  181. TICAGRELOR [Suspect]
     Active Substance: TICAGRELOR
     Dosage: 1.0 DOSAGE FORMS
     Route: 048
  182. TICAGRELOR [Suspect]
     Active Substance: TICAGRELOR
     Dosage: 1.0 DOSAGE FORMS IN 1 EVERY 5 DAYS
     Route: 048
  183. TICAGRELOR [Suspect]
     Active Substance: TICAGRELOR
     Dosage: 1.0 DOSAGE FORMS IN 1 EVERY 1 DAYS
     Route: 065
  184. TICAGRELOR [Suspect]
     Active Substance: TICAGRELOR
     Dosage: 1.0 DOSAGE FORM IN 1 EVERY 24 HOURS
     Route: 048
  185. TICAGRELOR [Suspect]
     Active Substance: TICAGRELOR
     Dosage: UNK
     Route: 065
  186. TESTOSTERONE [Suspect]
     Active Substance: TESTOSTERONE
     Indication: Product used for unknown indication
     Dosage: (DOSAGE FORM: NOT SPECIFIED) AT AN UNSPECIFIED DOSE AND FREQUENCY
     Route: 065
  187. TRAZODONE [Suspect]
     Active Substance: TRAZODONE HYDROCHLORIDE
     Indication: Product used for unknown indication
     Dosage: 1.0 DOSAGE FORM IN 1 EVERY 1 DAYS
     Route: 065
  188. TRAZODONE [Suspect]
     Active Substance: TRAZODONE HYDROCHLORIDE
     Dosage: U1.0 DOSAGE FORM IN 1 EVERY 1 DAYS
     Route: 048
  189. TRAZODONE HYDROCHLORIDE [Suspect]
     Active Substance: TRAZODONE HYDROCHLORIDE
     Indication: Product used for unknown indication
     Dosage: 1.0 DOSAGE FORM IN 1 EVERY 1 DAYS
     Route: 065
  190. TRAZODONE HYDROCHLORIDE [Suspect]
     Active Substance: TRAZODONE HYDROCHLORIDE
     Indication: Prinzmetal angina
     Dosage: 1.0 DOSAGE FORMS
     Route: 065
  191. TRAZODONE HYDROCHLORIDE [Suspect]
     Active Substance: TRAZODONE HYDROCHLORIDE
     Indication: Migraine
     Dosage: 1.0 DOSAGE FORMS IN 1 EVERY 1 DAYS
     Route: 048
  192. ZOPICLONE [Suspect]
     Active Substance: ZOPICLONE
     Indication: Product used for unknown indication
     Dosage: 1.0 DOSAGE FORM IN 1 EVERY 1 DAYS
     Route: 048
  193. ZOPICLONE [Suspect]
     Active Substance: ZOPICLONE
     Indication: Prinzmetal angina
     Dosage: 1.0 DOSAGE FORM IN 1 EVERY 1 DAYS
     Route: 065
  194. ZOPICLONE [Suspect]
     Active Substance: ZOPICLONE
     Indication: Migraine
     Dosage: 1.0 DOSAGE FORMS
     Route: 065
  195. ZOPICLONE [Suspect]
     Active Substance: ZOPICLONE
     Dosage: UNK
     Route: 065
  196. ACETAMINOPHEN\CODEINE PHOSPHATE [Suspect]
     Active Substance: ACETAMINOPHEN\CODEINE PHOSPHATE
     Indication: Product used for unknown indication
     Dosage: 1 EVERY 6 HOURS
     Route: 065
  197. ACETAMINOPHEN\CODEINE PHOSPHATE [Suspect]
     Active Substance: ACETAMINOPHEN\CODEINE PHOSPHATE
     Dosage: UNK
     Route: 065
  198. AMLODIPINE [Suspect]
     Active Substance: AMLODIPINE BESYLATE
     Indication: Product used for unknown indication
     Dosage: UNK
     Route: 065
  199. AMLODIPINE BESYLATE [Suspect]
     Active Substance: AMLODIPINE BESYLATE
     Indication: Product used for unknown indication
     Dosage: 1.0 OSAGE FORM IN 1 EVERY 1 DAYS
     Route: 065
  200. AMLODIPINE BESYLATE [Suspect]
     Active Substance: AMLODIPINE BESYLATE
     Dosage: 1.5 DOSAGE FORM IN 1 EVERY 1 DAYS
     Route: 065
  201. AMLODIPINE BESYLATE [Suspect]
     Active Substance: AMLODIPINE BESYLATE
     Dosage: 2.0 DOSAGE FORMS
     Route: 065
  202. AMLODIPINE BESYLATE [Suspect]
     Active Substance: AMLODIPINE BESYLATE
     Dosage: 1.0 DOSAGE FORM
     Route: 065
  203. BISOPROLOL [Suspect]
     Active Substance: BISOPROLOL\BISOPROLOL FUMARATE
     Indication: Product used for unknown indication
     Dosage: UNK
     Route: 065
  204. BRILINTA [Suspect]
     Active Substance: TICAGRELOR
     Indication: Product used for unknown indication
     Dosage: 2.0 DOSAGE FORM IN 1 EVERY 1 DAYS
     Route: 048
  205. BRILINTA [Suspect]
     Active Substance: TICAGRELOR
     Dosage: 1.0 DOSAGE FORMS
     Route: 065
  206. BRILINTA [Suspect]
     Active Substance: TICAGRELOR
     Dosage: 2.0 DOSAGE FORMS
     Route: 048
  207. BRILINTA [Suspect]
     Active Substance: TICAGRELOR
     Dosage: 1.0 DOSAGE FORMS
     Route: 065
  208. BRILINTA [Suspect]
     Active Substance: TICAGRELOR
     Dosage: 1.0 DOSAGE FORMS IN 1 EVERY 12 HOURS
     Route: 048
  209. BRILINTA [Suspect]
     Active Substance: TICAGRELOR
     Dosage: 2.0 DOSAGE FORMS IN 1 EVERY 12 HOURS
     Route: 065
  210. BRILINTA [Suspect]
     Active Substance: TICAGRELOR
     Dosage: 1.0 DOSAGE FORMS IN 1 EVERY 5 DAYS
     Route: 065
  211. CICLOPIROX [Suspect]
     Active Substance: CICLOPIROX
     Indication: Product used for unknown indication
     Dosage: 1.0 DOSAGE FORMS IN 1 EVERY 1 DAYS
     Route: 048
  212. CICLOPIROX [Suspect]
     Active Substance: CICLOPIROX
     Dosage: 1.0 DOSAGE FORM
     Route: 065
  213. CICLOPIROX [Suspect]
     Active Substance: CICLOPIROX
     Dosage: UNK
     Route: 065
  214. CICLOPIROX [Suspect]
     Active Substance: CICLOPIROX
     Dosage: 1.0 DOSAGE FORMS IN 1 EVERY 1 DAYS
     Route: 065
  215. CICLOPIROX [Suspect]
     Active Substance: CICLOPIROX
     Dosage: 3.0 DOSAGE FORM IN 1 EVERY 8 HOURS
     Route: 048
  216. CICLOPIROX [Suspect]
     Active Substance: CICLOPIROX
     Dosage: 1.0 DOSAGE FORM
     Route: 048
  217. CICLOPIROX [Suspect]
     Active Substance: CICLOPIROX
     Indication: Product used for unknown indication
     Dosage: UNK
     Route: 065
  218. DELATESTRYL [Suspect]
     Active Substance: TESTOSTERONE ENANTHATE
     Indication: Product used for unknown indication
     Dosage: 0.5 ML IN 1 EVERY 2 WEEKS (DOSAGE FORM: SOLUTION INTRAMUSCULAR)
     Route: 030
  219. DELATESTRYL [Suspect]
     Active Substance: TESTOSTERONE ENANTHATE
     Dosage: 5.0 ML IN 1 EVERY 2 WEEKS
     Route: 030
  220. DELATESTRYL [Suspect]
     Active Substance: TESTOSTERONE ENANTHATE
     Dosage: 1.0 DOSAGE FORMS IN 1 EVERY 2 DAYS
     Route: 030
  221. DELATESTRYL [Suspect]
     Active Substance: TESTOSTERONE ENANTHATE
     Dosage: 1.0 DOSAGE FORM IN 1 EVERY 12 HOURS
     Route: 030
  222. DELATESTRYL [Suspect]
     Active Substance: TESTOSTERONE ENANTHATE
     Dosage: UNK
     Route: 065
  223. DELATESTRYL [Suspect]
     Active Substance: TESTOSTERONE ENANTHATE
     Dosage: UNK
     Route: 030
  224. DELATESTRYL [Suspect]
     Active Substance: TESTOSTERONE ENANTHATE
     Dosage: 1.0 DOSAGE FORMS
     Route: 030
  225. DELATESTRYL [Suspect]
     Active Substance: TESTOSTERONE ENANTHATE
     Dosage: 1.0 DOSAGE FORM IN 1 EVERY 12 HOURS (DOSAGE FORM SOLUTION)
     Route: 030
  226. DELATESTRYL [Suspect]
     Active Substance: TESTOSTERONE ENANTHATE
     Dosage: 0.5 ML IN 1 EVERY 2 WEEKS (DOSAGE FORM: SOLUTION)
     Route: 030
  227. DELATESTRYL [Suspect]
     Active Substance: TESTOSTERONE ENANTHATE
     Dosage: DOSAGE FORM: SOLUTION
     Route: 030
  228. DELATESTRYL [Suspect]
     Active Substance: TESTOSTERONE ENANTHATE
     Dosage: 0.5 ML IN 1 EVERY 2 WEEKS (DOSAGE FORM: INJECTION)
     Route: 065
  229. DELATESTRYL [Suspect]
     Active Substance: TESTOSTERONE ENANTHATE
     Indication: Product used for unknown indication
     Dosage: 0.5 ML
     Route: 065
  230. DELATESTRYL [Suspect]
     Active Substance: TESTOSTERONE ENANTHATE
     Dosage: 0.5 ML IN 1 EVERY 1 WEEKS
     Route: 065
  231. DELATESTRYL [Suspect]
     Active Substance: TESTOSTERONE ENANTHATE
     Dosage: 5.0 ML IN 1 EVERY 1 WEEKS
     Route: 065
  232. DELATESTRYL [Suspect]
     Active Substance: TESTOSTERONE ENANTHATE
     Indication: Product used for unknown indication
     Dosage: UNK
     Route: 030
  233. DEXILANT [Suspect]
     Active Substance: DEXLANSOPRAZOLE
     Indication: Product used for unknown indication
     Dosage: 0.5 ML IN 1 EVERY 1 DAYS
     Route: 065
  234. DEXILANT [Suspect]
     Active Substance: DEXLANSOPRAZOLE
     Dosage: 0.5 ML IN 1 EVERY 1 DAYS
     Route: 065
  235. DEXILANT [Suspect]
     Active Substance: DEXLANSOPRAZOLE
     Dosage: 1.0 DOSAGE FORMS
     Route: 065
  236. DEXILANT [Suspect]
     Active Substance: DEXLANSOPRAZOLE
     Dosage: DOSAGE FORM: PROLONGED RELEASE CAPSULE HARD, 1 DOSAGE FORMS 1 EVERY 1 DAYS
     Route: 065
  237. DEXILANT [Suspect]
     Active Substance: DEXLANSOPRAZOLE
     Dosage: DOSAGE FORM: PROLONGED RELEASE CAPSULE HARD, 1 DOSAGE FORMS 1 EVERY 1 DAYS
     Route: 048
  238. DEXILANT [Suspect]
     Active Substance: DEXLANSOPRAZOLE
     Dosage: DOSAGE FORM: CAPSULE DELAYED RELEASE 1 DOSAGE FORMS 1 EVERY 1 DAY
     Route: 065
  239. DILTIAZEM [Suspect]
     Active Substance: DILTIAZEM
     Indication: Product used for unknown indication
     Dosage: 1.0 DOSAGE FORM IN 1 EVERY 1 DAYS
     Route: 065
  240. DILTIAZEM [Suspect]
     Active Substance: DILTIAZEM
     Dosage: 1.0 DOSAGE FORM IN 1 EVERY 24 HOURS (DOSAGE FORMS: NOT SPECIFIED)
     Route: 065
  241. DILTIAZEM [Suspect]
     Active Substance: DILTIAZEM
     Dosage: 1.0 DOSAGE FORM IN 1 EVERY 1 DAYS
     Route: 048
  242. DILTIAZEM [Suspect]
     Active Substance: DILTIAZEM
     Dosage: 1.0 DOSAGE FORM IN 1 EVERY 24 HOURS
     Route: 065
  243. DILTIAZEM HYDROCHLORIDE [Suspect]
     Active Substance: DILTIAZEM HYDROCHLORIDE
     Indication: Product used for unknown indication
     Dosage: 1.0 DOSAGE FORM IN 1 EVERY 24 HOURS
     Route: 065
  244. DILTIAZEM HYDROCHLORIDE [Suspect]
     Active Substance: DILTIAZEM HYDROCHLORIDE
     Dosage: 1.0 DOSAGE FORM IN 1 EVERY 24 HOURS
     Route: 048
  245. DILTIAZEM HYDROCHLORIDE [Suspect]
     Active Substance: DILTIAZEM HYDROCHLORIDE
     Dosage: UNK
     Route: 065
  246. DILTIAZEM HYDROCHLORIDE [Suspect]
     Active Substance: DILTIAZEM HYDROCHLORIDE
     Dosage: 1.0 DOSAGE FORM
     Route: 048
  247. DILTIAZEM HYDROCHLORIDE [Suspect]
     Active Substance: DILTIAZEM HYDROCHLORIDE
     Dosage: 1.0 DOSAGE FORM
     Route: 065
  248. ESCITALOPRAM OXALATE [Suspect]
     Active Substance: ESCITALOPRAM OXALATE
     Indication: Product used for unknown indication
     Dosage: UNK
     Route: 065
  249. ESCITALOPRAM OXALATE [Suspect]
     Active Substance: ESCITALOPRAM OXALATE
     Dosage: 1.0 DOSAGE FORM IN 1 EVERY 1 DAYS
     Route: 065
  250. NITROGLYCERIN [Suspect]
     Active Substance: NITROGLYCERIN
     Indication: Prinzmetal angina
     Dosage: 1.0 DOASGE FORM IN 1 EVERY 1 DAYS
     Route: 048
  251. NITROGLYCERIN [Suspect]
     Active Substance: NITROGLYCERIN
     Dosage: 1.0 DOSAGE FORM IN 1 EVERY 6 HOURS
     Route: 048
  252. NITROGLYCERIN [Suspect]
     Active Substance: NITROGLYCERIN
     Dosage: 1 EVERY 1 DAYS
     Route: 048
  253. NITROGLYCERIN [Suspect]
     Active Substance: NITROGLYCERIN
     Dosage: UNK
     Route: 065
  254. METOCLOPRAMIDE HYDROCHLORIDE [Suspect]
     Active Substance: METOCLOPRAMIDE HYDROCHLORIDE
     Indication: Migraine
     Dosage: 3.0 DOSAGE FORM IN 1 EVERY 1 DAYS
     Route: 065
  255. METOCLOPRAMIDE HYDROCHLORIDE [Suspect]
     Active Substance: METOCLOPRAMIDE HYDROCHLORIDE
     Dosage: UNK
     Route: 065
  256. MOMETASONE FUROATE [Suspect]
     Active Substance: MOMETASONE FUROATE
     Indication: Product used for unknown indication
     Dosage: UNK
  257. MOMETASONE FUROATE [Suspect]
     Active Substance: MOMETASONE FUROATE
     Dosage: 1 EVERY 1 DAYS
  258. MOMETASONE FUROATE [Suspect]
     Active Substance: MOMETASONE FUROATE
     Dosage: 1.0 DOSAGE FORM IN 1 1EVERY 1 DAYS
  259. MOMETASONE FUROATE [Suspect]
     Active Substance: MOMETASONE FUROATE
     Dosage: UNK
     Route: 065
  260. MOMETASONE FUROATE [Suspect]
     Active Substance: MOMETASONE FUROATE
     Dosage: DOSAGE FORM: NOT SPECIFIED, 1 DOSAGE FORMS 1 EVERY 1 DAYS
     Route: 065
  261. NASONEX [Suspect]
     Active Substance: MOMETASONE FUROATE
     Indication: Product used for unknown indication
     Dosage: 1.0 DOSAGE FORM IN 1 EVERY 24 HOURS
     Route: 065
  262. NASONEX [Suspect]
     Active Substance: MOMETASONE FUROATE
     Dosage: 1.0 DOSAGE FORM
     Route: 065
  263. NITROGLYCERIN [Suspect]
     Active Substance: NITROGLYCERIN
     Indication: Product used for unknown indication
     Dosage: 1.0 DOSAGE FROM IN 1 EVERY 1 DAYS
     Route: 065
  264. NITROGLYCERIN [Suspect]
     Active Substance: NITROGLYCERIN
     Indication: Prinzmetal angina
  265. RAMIPRIL [Suspect]
     Active Substance: RAMIPRIL
     Indication: Product used for unknown indication
     Dosage: 1.0 DOSAGE FORM IN 1 EVERY 6 HOURS
     Route: 065
  266. RAMIPRIL [Suspect]
     Active Substance: RAMIPRIL
     Dosage: 4.0 DOSAGE FORM IN 1 EVERY 24 HOURS
     Route: 048
  267. RAMIPRIL [Suspect]
     Active Substance: RAMIPRIL
     Dosage: 4.0 DOSAGE FORM IN 1 EVERY 24 HOURS
     Route: 065
  268. RAMIPRIL [Suspect]
     Active Substance: RAMIPRIL
     Dosage: 4.0 DOSAGE FORM IN 1 EVERY 1 DAYS
     Route: 065
  269. RAMIPRIL [Suspect]
     Active Substance: RAMIPRIL
     Dosage: 1.0 DOSAGE FORM IN 1 EVERY 4 HOURS
     Route: 065
  270. RAMIPRIL [Suspect]
     Active Substance: RAMIPRIL
     Dosage: 1 EVERY 6 HOURS
     Route: 065
  271. TAMSULOSIN HYDROCHLORIDE [Suspect]
     Active Substance: TAMSULOSIN HYDROCHLORIDE
     Indication: Prinzmetal angina
     Dosage: 1.0 DOSAGE FORM IN 1 EVERY 1 DAYS (DOSAGE FORM: SUSTAINED RELEASE CAPSULE)
     Route: 065
  272. TAMSULOSIN HYDROCHLORIDE [Suspect]
     Active Substance: TAMSULOSIN HYDROCHLORIDE
     Indication: Migraine
  273. TAMSULOSIN HYDROCHLORIDE [Suspect]
     Active Substance: TAMSULOSIN HYDROCHLORIDE
     Indication: Prinzmetal angina
     Dosage: 1.0 DOSAGE FORMS IN 1 EVERY 1 DAYS
     Route: 065
  274. TAMSULOSIN HYDROCHLORIDE [Suspect]
     Active Substance: TAMSULOSIN HYDROCHLORIDE
     Indication: Migraine
     Dosage: UNK
     Route: 065
  275. TAMSULOSIN HYDROCHLORIDE [Suspect]
     Active Substance: TAMSULOSIN HYDROCHLORIDE
     Dosage: 1.0 DOSAGE FORM
     Route: 048
  276. TESTOSTERONE ENANTHATE [Suspect]
     Active Substance: TESTOSTERONE ENANTHATE
     Indication: Product used for unknown indication
     Dosage: UNK
     Route: 048
  277. TESTOSTERONE ENANTHATE [Suspect]
     Active Substance: TESTOSTERONE ENANTHATE
     Dosage: 0.5 ML
     Route: 065
  278. TESTOSTERONE ENANTHATE [Suspect]
     Active Substance: TESTOSTERONE ENANTHATE
     Dosage: 0.5 ML IN 1 EVERY 1 DAYS
     Route: 065
  279. TESTOSTERONE ENANTHATE [Suspect]
     Active Substance: TESTOSTERONE ENANTHATE
     Dosage: UDOSAGE FORM: LIQUID INTRAMUSCULAR
     Route: 030
  280. DELATESTRYL [Suspect]
     Active Substance: TESTOSTERONE ENANTHATE
     Indication: Product used for unknown indication
     Dosage: DOSAGE FORM: SOLUTION INTRAMUSCULAR, 0.5 ML 1 EVERY 2 WEEKS
     Route: 030
  281. DELATESTRYL [Suspect]
     Active Substance: TESTOSTERONE ENANTHATE
     Dosage: DOSAGE FORM: SOLUTION, 1 DOSAGE FORMS 1 EVERY 12 HRS
     Route: 030
  282. LEVOTHYROXINE SODIUM [Suspect]
     Active Substance: LEVOTHYROXINE SODIUM
     Indication: Product used for unknown indication
     Dosage: 1 DOSAGE FORMS 1 EVERY 1 DAYS
     Route: 065
  283. NASONEX [Suspect]
     Active Substance: MOMETASONE FUROATE
     Indication: Product used for unknown indication
     Dosage: DOSAGE FORM: SPRAY METERED DOSE, 1 DOSAGE FORMS 1 EVERY 24 HRS
     Route: 065
  284. NASONEX [Suspect]
     Active Substance: MOMETASONE FUROATE
     Dosage: 1 DOSAGE FORMS
     Route: 065
  285. NASONEX [Suspect]
     Active Substance: MOMETASONE FUROATE
     Dosage: 1 DOSAGE FORMS 1 EVERY 24 HRS
     Route: 065
  286. ROSUVASTATIN CALCIUM [Suspect]
     Active Substance: ROSUVASTATIN CALCIUM
     Indication: Product used for unknown indication
     Dosage: 1 DOSAGE FORMS 1 EVRY 1 DAYS
     Route: 065
  287. ZOPICLONE [Suspect]
     Active Substance: ZOPICLONE
     Indication: Product used for unknown indication
     Route: 065
  288. FLOMAX [Suspect]
     Active Substance: TAMSULOSIN HYDROCHLORIDE
     Indication: Prinzmetal angina
     Dosage: 1 DOSAGE FORM 1 EVERY 1 DAY (DOSAGE FORM: CAPSULE, SUSTAINED RELEASE)
     Route: 048
  289. FLOMAX [Suspect]
     Active Substance: TAMSULOSIN HYDROCHLORIDE
     Indication: Migraine
     Dosage: AT AN UNSPECIFIED FREQUENCY
     Route: 065
  290. PREDNISONE [Concomitant]
     Active Substance: PREDNISONE
     Indication: Product used for unknown indication
     Dosage: UNK
     Route: 065
  291. NITROGLYCERIN [Concomitant]
     Active Substance: NITROGLYCERIN
     Indication: Prinzmetal angina
     Dosage: UNK
     Route: 065
  292. ESCITALOPRAM OXALATE [Concomitant]
     Active Substance: ESCITALOPRAM OXALATE
     Indication: Product used for unknown indication
     Dosage: UNK
     Route: 065
  293. ACETAMINOPHEN\CODEINE PHOSPHATE [Concomitant]
     Active Substance: ACETAMINOPHEN\CODEINE PHOSPHATE
     Indication: Product used for unknown indication
     Dosage: UNK
     Route: 048
  294. SYNTHROID [Concomitant]
     Active Substance: LEVOTHYROXINE SODIUM
     Indication: Product used for unknown indication
     Dosage: 1.0 DOSAGE FORMS IN 1 EVERY 24 HOURS
     Route: 065
  295. SYNTHROID [Concomitant]
     Active Substance: LEVOTHYROXINE SODIUM
     Indication: Prinzmetal angina
     Dosage: 1.0 DOSAGE FORMS IN 1 EVERY 1 DAYS
     Route: 065
  296. SYNTHROID [Concomitant]
     Active Substance: LEVOTHYROXINE SODIUM
     Indication: Migraine
     Dosage: 1.0 DOSAGE FORMS
     Route: 065
  297. NITROGLYCERIN [Concomitant]
     Active Substance: NITROGLYCERIN
     Indication: Product used for unknown indication
     Dosage: 1.0 DOSAGE FORM IN 1 EVERY 6 HOURS
     Route: 048
  298. NITROGLYCERIN [Concomitant]
     Active Substance: NITROGLYCERIN
     Indication: Prinzmetal angina
     Dosage: UNK
     Route: 048
  299. NITROGLYCERIN [Concomitant]
     Active Substance: NITROGLYCERIN
     Indication: Migraine
     Dosage: 1.0 DOSAGE FORM IN 1 EVERY 1 DAY
     Route: 065
  300. NITROGLYCERIN [Concomitant]
     Active Substance: NITROGLYCERIN
     Dosage: 1.0 DOSAGE FORM IN 1 EVERY 8 HOURS
     Route: 048
  301. NITROGLYCERIN [Concomitant]
     Active Substance: NITROGLYCERIN
     Dosage: DOSAGE FORM: SUBLINGUIAL SPRAY, 1 DOSAGE FORMS 1 EVERY 1 DAYS
     Route: 048
  302. NITROGLYCERIN [Concomitant]
     Active Substance: NITROGLYCERIN
     Dosage: DOSAGE FORM: SUBLINGUIAL SPRAY
     Route: 048
  303. NITROGLYCERIN [Concomitant]
     Active Substance: NITROGLYCERIN
     Dosage: UNK
     Route: 065
  304. NITROGLYCERIN [Concomitant]
     Active Substance: NITROGLYCERIN
     Dosage: DOSAGE FORM: OROMUCOSAL SPRAY, 1 DOSAGE FORMS 1 EVERY 1 DAYS
     Route: 065
  305. NITROGLYCERIN [Concomitant]
     Active Substance: NITROGLYCERIN
     Dosage: UNK
     Route: 048
  306. NITROGLYCERIN [Concomitant]
     Active Substance: NITROGLYCERIN
     Dosage: DOSAGE FORM: OROMUCOSAL SPRAY, 1 DOSAGE FORMS 1 EVERY 1 DAYS
     Route: 049
  307. NITROGLYCERIN [Concomitant]
     Active Substance: NITROGLYCERIN
     Dosage: DOSAGE FORM: OROMUCOSAL SPRAY, 1 DOSAGE FORMS 1 EVERY 1 DAYS
     Route: 065
  308. NITROGLYCERIN [Concomitant]
     Active Substance: NITROGLYCERIN
     Dosage: DOSAGE FORM: INHALATION GAS
     Route: 048
  309. NITROGLYCERIN [Concomitant]
     Active Substance: NITROGLYCERIN
     Dosage: DOSAGE FORM: INHALATION GASUNK
     Route: 048
  310. HYDROCORTISONE [Concomitant]
     Active Substance: HYDROCORTISONE\HYDROCORTISONE ACETATE
     Indication: Product used for unknown indication
     Dosage: 1.0 DOSAGE FORMS
     Route: 065
  311. HYDROCORTISONE [Concomitant]
     Active Substance: HYDROCORTISONE\HYDROCORTISONE ACETATE
     Indication: Prinzmetal angina
     Dosage: 1.0 DOSAGE FORMS
     Route: 061
  312. HYDROCORTISONE [Concomitant]
     Active Substance: HYDROCORTISONE\HYDROCORTISONE ACETATE
     Indication: Migraine
     Dosage: 1.0 DOSAGE FORMS IN 1 EVERY 24 HOURS
     Route: 065
  313. HYDROCORTISONE [Concomitant]
     Active Substance: HYDROCORTISONE\HYDROCORTISONE ACETATE
     Dosage: 1.0 DOSAGE FORMS IN 1 EVERY 1 DAYS
     Route: 061
  314. ZOPICLONE [Concomitant]
     Active Substance: ZOPICLONE
     Indication: Product used for unknown indication
     Dosage: 1.0 DOSAGE FORMS IN 1 EVERY 1 DAYS
     Route: 048
  315. ZOPICLONE [Concomitant]
     Active Substance: ZOPICLONE
     Indication: Prinzmetal angina
     Dosage: 1.0 DOSAGE FORM
     Route: 048
  316. ZOPICLONE [Concomitant]
     Active Substance: ZOPICLONE
     Indication: Migraine
     Dosage: UNK
     Route: 065
  317. BENZOYL PEROXIDE [Concomitant]
     Active Substance: BENZOYL PEROXIDE
     Indication: Product used for unknown indication
     Dosage: 1.0 DOSAGE FORMS IN 1 EVERY 1 DAYS
     Route: 061
  318. BENZOYL PEROXIDE [Concomitant]
     Active Substance: BENZOYL PEROXIDE
     Indication: Prinzmetal angina
  319. BENZOYL PEROXIDE [Concomitant]
     Active Substance: BENZOYL PEROXIDE
     Indication: Migraine
  320. PREDNISONE [Concomitant]
     Active Substance: PREDNISONE
     Indication: Prinzmetal angina
     Dosage: AT AN UNSPECIFIED DOSE AND FREQUENCY
     Route: 065
  321. PREDNISONE [Concomitant]
     Active Substance: PREDNISONE
     Indication: Migraine
  322. MORNIFLUMATE [Concomitant]
     Active Substance: MORNIFLUMATE
     Indication: Product used for unknown indication
     Dosage: UNK
     Route: 065
  323. MORNIFLUMATE [Concomitant]
     Active Substance: MORNIFLUMATE
     Indication: Prinzmetal angina
     Dosage: 1.0 DOSAGE FORMS IN 1 EVERY 1 DAYS
     Route: 065
  324. MORNIFLUMATE [Concomitant]
     Active Substance: MORNIFLUMATE
     Indication: Migraine
     Dosage: 1.0 DOSAGE FORMS
     Route: 065
  325. METOCLOPRAMIDE [Concomitant]
     Active Substance: METOCLOPRAMIDE
     Indication: Migraine
     Dosage: 3.0 DOSAGE FORM IN 1 EVERY 1 DAYS
     Route: 065
  326. ASPIRIN [Concomitant]
     Active Substance: ASPIRIN
     Indication: Prinzmetal angina
     Dosage: 81.0 MILLIGRAM IN 1 EVERY 1 DAYS
     Route: 065
  327. ASPIRIN [Concomitant]
     Active Substance: ASPIRIN
     Indication: Migraine
     Dosage: 1.0 DOSAGE FORMS IN 1 EVERY 1 DAYS
     Route: 065
  328. ASPIRIN [Concomitant]
     Active Substance: ASPIRIN
     Dosage: 81.0 MILLIGRAM IN 1 EVERY 1 DAYS
     Route: 048
  329. ASPIRIN [Concomitant]
     Active Substance: ASPIRIN
     Dosage: 1 EVERY 1 DAYS
     Route: 065
  330. ASPIRIN [Concomitant]
     Active Substance: ASPIRIN
     Dosage: 81.0 MILLIGRAM IN 1 EVERY DAYS (DOSAGE FORM: NOT SPECIFIED)
     Route: 065
  331. ASPIRIN [Concomitant]
     Active Substance: ASPIRIN
     Dosage: 1.0 DOSAGE FORM
     Route: 048
  332. ASPIRIN [Concomitant]
     Active Substance: ASPIRIN
     Dosage: 1.0 DOSAGE FORM
     Route: 065
  333. BISOPROLOL [Concomitant]
     Active Substance: BISOPROLOL\BISOPROLOL FUMARATE
     Indication: Product used for unknown indication
     Route: 048
  334. AMLODIPINE BESYLATE [Concomitant]
     Active Substance: AMLODIPINE BESYLATE
     Indication: Product used for unknown indication
     Dosage: 1.5 DOSAGE FORMS 1 EVERY 1 DAYS
     Route: 065
  335. AMLODIPINE BESYLATE [Concomitant]
     Active Substance: AMLODIPINE BESYLATE
     Dosage: 1 EVERY 1 DAYS
     Route: 065
  336. TRAZODONE HYDROCHLORIDE [Concomitant]
     Active Substance: TRAZODONE HYDROCHLORIDE
     Indication: Product used for unknown indication
     Dosage: 1.0 DOSAGE FORMS 1 EVERY 1 DAYS
     Route: 048
  337. TRAZODONE HYDROCHLORIDE [Concomitant]
     Active Substance: TRAZODONE HYDROCHLORIDE
     Dosage: 1 EVERY 1 DAYS
     Route: 065

REACTIONS (4)
  - Device dislocation [Recovered/Resolved]
  - Device malfunction [Recovered/Resolved]
  - Drug ineffective [Recovered/Resolved]
  - Product use in unapproved indication [Recovered/Resolved]
